FAERS Safety Report 4697931-4 (Version None)
Quarter: 2005Q2

REPORT INFORMATION
  Report Type: 
  Country: None (occurrence: None)
  Receive Date: 20050623
  Receipt Date: 20010503
  Transmission Date: 20051028
  Serious: Yes (Hospitalization)
  Sender: FDA-Public Use
  Company Number: FR-BOEHRINGER INGELHEIM PHARMACEUTICALS, INC.-2001-FF-S0267

PATIENT
  Sex: Female
  Weight: 3 kg

DRUGS (9)
  1. VIRAMUNE [Suspect]
     Indication: HIV INFECTION
     Route: 015
     Dates: start: 19990517, end: 19990517
  2. VIDEX [Suspect]
     Indication: HIV INFECTION
     Route: 015
     Dates: start: 19981126, end: 19990517
  3. RETROVIR [Suspect]
     Indication: HIV INFECTION
     Route: 015
     Dates: start: 19990401, end: 19990517
  4. RETROVIR [Suspect]
     Indication: VERTICAL INFECTION TRANSMISSION
     Route: 015
     Dates: start: 19990517, end: 19990517
  5. RETROVIR [Suspect]
     Route: 048
  6. ZERIT [Suspect]
     Indication: HIV INFECTION
     Route: 015
     Dates: start: 19981126, end: 19990401
  7. IRON [Concomitant]
     Indication: ANAEMIA
     Route: 015
  8. BACTRIM [Concomitant]
     Route: 015
  9. SPASFON [Concomitant]
     Route: 015

REACTIONS (12)
  - AGITATION [None]
  - ANAEMIA [None]
  - BLOOD LACTIC ACID INCREASED [None]
  - CAESAREAN SECTION [None]
  - DRUG EXPOSURE DURING PREGNANCY [None]
  - IRRITABILITY [None]
  - NEONATAL DISORDER [None]
  - NEONATAL HEPATOMEGALY [None]
  - NEUTROPENIA [None]
  - RESTLESSNESS [None]
  - STRIDOR [None]
  - TREMOR NEONATAL [None]
